FAERS Safety Report 6480342-9 (Version None)
Quarter: 2009Q4

REPORT INFORMATION
  Report Type: 
  Country: None (occurrence: None)
  Receive Date: 20091208
  Receipt Date: 20091202
  Transmission Date: 20100525
  Serious: Yes (Death, Other)
  Sender: FDA-Public Use
  Company Number: PHHY2009IE49206

PATIENT
  Age: 48 Year
  Sex: Male

DRUGS (4)
  1. CLOZAPINE [Suspect]
     Indication: SCHIZOPHRENIA
     Dosage: UNK
  2. CLOZAPINE [Suspect]
     Dosage: 75 MG MANE AND 50 MG NOCTE
  3. HALOPERIDOL [Concomitant]
     Dosage: 10 MG/ DAY (DIVIDED DOSED)
  4. DIAZEPAM [Concomitant]
     Dosage: 4 MG/DAY (DIVIDED DOSES)

REACTIONS (17)
  - BLOOD PRESSURE INCREASED [None]
  - CONFUSIONAL STATE [None]
  - COUGH [None]
  - DECREASED APPETITE [None]
  - HALLUCINATION [None]
  - HYPERSOMNIA [None]
  - IRRITABILITY [None]
  - MALAISE [None]
  - MONOCYTE COUNT INCREASED [None]
  - MYOCARDITIS [None]
  - NEUTROPHIL COUNT INCREASED [None]
  - PALLOR [None]
  - POOR QUALITY SLEEP [None]
  - RESTLESSNESS [None]
  - SOMNOLENCE [None]
  - URINARY INCONTINENCE [None]
  - WHITE BLOOD CELL COUNT INCREASED [None]
